FAERS Safety Report 5368219-3 (Version None)
Quarter: 2007Q2

REPORT INFORMATION
  Report Type: 
  Country: None (occurrence: None)
  Receive Date: 20070625
  Receipt Date: 20070613
  Transmission Date: 20071010
  Serious: Yes (Hospitalization)
  Sender: FDA-Public Use
  Company Number: PHBS2007CA09960

PATIENT
  Age: 72 Year
  Sex: Female
  Weight: 85 kg

DRUGS (15)
  1. METOPROLOL SUCCINATE [Suspect]
     Dosage: 50 MG, BID
     Route: 048
  2. METOPROLOL SUCCINATE [Suspect]
     Dosage: 62.5 MG, BID
     Route: 048
  3. METOPROLOL SUCCINATE [Suspect]
     Dosage: 50 MG, BID
     Route: 048
  4. CITALOPRAM HYDROBROMIDE [Suspect]
     Dosage: 40 MG, QD
  5. FELODIPINE [Concomitant]
     Dosage: 10 MG/DAY
  6. CANDESARTAN [Concomitant]
     Dosage: 48 MG/DAY
  7. FUROSEMIDE [Concomitant]
     Dosage: 60 MG, QD
  8. FUROSEMIDE [Concomitant]
     Dosage: 20 MG, QD
  9. FOSINOPRIL SODIUM [Concomitant]
     Dosage: 20 MG/DAY
  10. ASPIRIN [Concomitant]
     Dosage: 325 MG/DAY
  11. ROSUVASTATIN [Concomitant]
     Dosage: 10 MG/DAY
  12. LEVOTHYROXINE SODIUM [Concomitant]
     Dosage: 0.05 MG/DAY
  13. INSULATARD NPH HUMAN [Concomitant]
  14. BROMAZEPAM [Concomitant]
     Dosage: 6 MG, QD
  15. COLCHICINE [Concomitant]
     Dosage: 0.6 MG/DAY

REACTIONS (16)
  - BLOOD CREATININE INCREASED [None]
  - BLOOD PRESSURE INADEQUATELY CONTROLLED [None]
  - BLOOD UREA INCREASED [None]
  - CARDIAC FAILURE CONGESTIVE [None]
  - COUGH [None]
  - CREATININE RENAL CLEARANCE DECREASED [None]
  - DEHYDRATION [None]
  - DRUG INTERACTION [None]
  - DYSPNOEA [None]
  - FAECAL INCONTINENCE [None]
  - FALL [None]
  - HYPERKALAEMIA [None]
  - LUNG DISORDER [None]
  - PNEUMONIA [None]
  - RENAL FAILURE [None]
  - URINARY INCONTINENCE [None]
